FAERS Safety Report 12316907 (Version 2)
Quarter: 2018Q2

REPORT INFORMATION
  Report Type: Spontaneous
  Country: US (occurrence: US)
  Receive Date: 20160429
  Receipt Date: 20180621
  Transmission Date: 20180711
  Serious: No
  Sender: FDA-Public Use
  Company Number: US-ASTRAZENECA-2016SE32869

PATIENT
  Age: 1071 Month
  Sex: Male
  Weight: 81.6 kg

DRUGS (11)
  1. FINASTERIDE. [Concomitant]
     Active Substance: FINASTERIDE
     Indication: PROSTATE INFECTION
     Dates: start: 201601
  2. HYDROCOTISONE [Concomitant]
     Indication: EOSINOPHILIC PNEUMONIA
  3. LOSARTAN. [Concomitant]
     Active Substance: LOSARTAN
     Indication: BLOOD PRESSURE MEASUREMENT
  4. NOVOLOG [Concomitant]
     Active Substance: INSULIN ASPART
     Indication: DIABETES MELLITUS
  5. LOSARTAN. [Concomitant]
     Active Substance: LOSARTAN
     Indication: BLOOD PRESSURE MEASUREMENT
  6. TAMULOSIN [Concomitant]
     Active Substance: TAMSULOSIN
     Indication: URINARY TRACT INFECTION
  7. INSULIN [Concomitant]
     Active Substance: INSULIN NOS
     Indication: DIABETES MELLITUS
  8. TAMULOSIN [Concomitant]
     Active Substance: TAMSULOSIN
     Indication: URINARY TRACT INFECTION
  9. ADVAIR HFA [Concomitant]
     Active Substance: FLUTICASONE PROPIONATE\SALMETEROL XINAFOATE
     Indication: EOSINOPHILIC PNEUMONIA
     Dosage: TWO TIMES A DAY
  10. SYMBICORT [Suspect]
     Active Substance: BUDESONIDE\FORMOTEROL FUMARATE DIHYDRATE
     Indication: ASTHMA
     Dosage: 160/4.5MCG ONE PUFF ONCE DAILY
     Route: 055
     Dates: start: 201512
  11. SYMBICORT [Suspect]
     Active Substance: BUDESONIDE\FORMOTEROL FUMARATE DIHYDRATE
     Indication: EOSINOPHILIC PNEUMONIA
     Dosage: 160/4.5MCG ONE PUFF ONCE DAILY
     Route: 055
     Dates: start: 201512

REACTIONS (20)
  - Dyspnoea [Unknown]
  - Vitamin D deficiency [Unknown]
  - Fatigue [Unknown]
  - Blood glucose abnormal [Not Recovered/Not Resolved]
  - Adverse drug reaction [Unknown]
  - Asthma [Unknown]
  - Asthenia [Unknown]
  - Mobility decreased [Unknown]
  - Memory impairment [Unknown]
  - Pulmonary function test decreased [Unknown]
  - Dyspnoea exertional [Unknown]
  - Blood glucose increased [Unknown]
  - Radiculopathy [Unknown]
  - Blood pressure increased [Unknown]
  - Off label use [Unknown]
  - Product use in unapproved indication [Unknown]
  - Intentional product misuse [Unknown]
  - Haemoglobin decreased [Unknown]
  - Lumbar radiculopathy [Unknown]
  - Type 2 diabetes mellitus [Unknown]

NARRATIVE: CASE EVENT DATE: 201512
